FAERS Safety Report 4944726-X (Version None)
Quarter: 2006Q1

REPORT INFORMATION
  Report Type: 
  Country: None (occurrence: None)
  Receive Date: 20060113
  Receipt Date: 20050309
  Transmission Date: 20060701
  Serious: Yes (Other)
  Sender: FDA-Public Use
  Company Number: HQWYE588125AUG04

PATIENT
  Sex: Female
  Weight: 63.56 kg

DRUGS (6)
  1. PREMPRO [Suspect]
     Dosage: ORAL
     Route: 048
     Dates: start: 19950101
  2. MEDROXYPROGESTERONE [Suspect]
  3. PREMARIN [Suspect]
     Indication: BONE DENSITY INCREASED
     Dosage: ORAL
     Route: 048
     Dates: start: 19940101, end: 20020101
  4. PREMARIN [Suspect]
     Indication: PROPHYLAXIS
     Dosage: ORAL
     Route: 048
     Dates: start: 19940101, end: 20020101
  5. PROVERA [Suspect]
     Indication: MENOPAUSE
     Dosage: ORAL
     Route: 048
     Dates: start: 19940101, end: 20020101
  6. DOCUSATE SODIUM [Concomitant]

REACTIONS (1)
  - BREAST CANCER [None]
